FAERS Safety Report 16182421 (Version 3)
Quarter: 2019Q2

REPORT INFORMATION
  Report Type: Report from Study
  Country: GB (occurrence: GB)
  Receive Date: 20190411
  Receipt Date: 20190417
  Transmission Date: 20190711
  Serious: Yes (Hospitalization, Other)
  Sender: FDA-Public Use
  Company Number: PHHY2019GB082246

PATIENT
  Sex: Male

DRUGS (1)
  1. COSENTYX [Suspect]
     Active Substance: SECUKINUMAB
     Indication: ANKYLOSING SPONDYLITIS
     Dosage: 150 MG, QW (150 MG WEEKLY LOADING DOSES FOR WEEK 1-4, MAINTENANCE DOSE 150 MG MONTHLY)
     Route: 058
     Dates: start: 20190329

REACTIONS (4)
  - Asthenia [Unknown]
  - Nephrolithiasis [Recovered/Resolved]
  - Congenital cystic kidney disease [Unknown]
  - Nasopharyngitis [Unknown]
